FAERS Safety Report 5392488-7 (Version None)
Quarter: 2007Q3

REPORT INFORMATION
  Report Type: 
  Country: None (occurrence: None)
  Receive Date: 20070720
  Receipt Date: 20070712
  Transmission Date: 20080115
  Serious: Yes (Other)
  Sender: FDA-Public Use
  Company Number: DE-ELI_LILLY_AND_COMPANY-DE200707003518

PATIENT
  Age: 61 Year
  Sex: Female
  Weight: 73.5 kg

DRUGS (3)
  1. HUMINSULIN NPH [Suspect]
     Indication: DIABETES MELLITUS
     Dosage: 8 U, UNK
     Route: 058
     Dates: start: 19970101
  2. HUMALOG [Suspect]
     Indication: DIABETES MELLITUS
     Dosage: 13 U, UNK
     Route: 058
     Dates: start: 19970101
  3. BENAZEPRIL HYDROCHLORIDE [Concomitant]
     Indication: HYPERTENSION
     Route: 048
     Dates: start: 20070401

REACTIONS (4)
  - ANXIETY [None]
  - BLOOD GLUCOSE INCREASED [None]
  - HEADACHE [None]
  - SLEEP DISORDER [None]
